FAERS Safety Report 12888041 (Version 2)
Quarter: 2016Q4

REPORT INFORMATION
  Report Type: Spontaneous
  Country: US (occurrence: US)
  Receive Date: 20161027
  Receipt Date: 20161205
  Transmission Date: 20170207
  Serious: No
  Sender: FDA-Public Use
  Company Number: US-ASTRAZENECA-2016SF07954

PATIENT
  Age: 28176 Day
  Sex: Male
  Weight: 97.5 kg

DRUGS (1)
  1. PULMICORT FLEXHALER [Suspect]
     Active Substance: BUDESONIDE
     Indication: ASTHMA
     Dosage: 180MCG 1 PUFF TWICE DAILY
     Route: 055
     Dates: start: 20160902

REACTIONS (2)
  - Device failure [Unknown]
  - Asthma [Unknown]
